FAERS Safety Report 5353429-1 (Version None)
Quarter: 2007Q2

REPORT INFORMATION
  Report Type: 
  Country: None (occurrence: None)
  Receive Date: 20070612
  Receipt Date: 20070531
  Transmission Date: 20071010
  Serious: Yes (Hospitalization)
  Sender: FDA-Public Use
  Company Number: PHBS2007IE00717

PATIENT
  Age: 71 Year
  Sex: Male

DRUGS (1)
  1. CLOZARIL [Suspect]
     Dosage: 350 MG/D
     Route: 048
     Dates: start: 20070108, end: 20070108

REACTIONS (2)
  - DRUG ADMINISTRATION ERROR [None]
  - GASTRIC LAVAGE [None]
